FAERS Safety Report 6305184-6 (Version None)
Quarter: 2009Q3

REPORT INFORMATION
  Report Type: 
  Country: None (occurrence: None)
  Receive Date: 20090811
  Receipt Date: 20090811
  Transmission Date: 20100115
  Serious: Yes (Hospitalization)
  Sender: FDA-Public Use
  Company Number: FR-PFIZER INC-2009248499

PATIENT
  Age: 85 Year

DRUGS (15)
  1. CELEBREX [Suspect]
     Indication: ARTHRALGIA
     Dosage: 200 MG, UNK
     Route: 048
     Dates: start: 20090423, end: 20090426
  2. FLECTOR [Suspect]
     Indication: PAIN
     Dosage: UNK
     Route: 061
     Dates: start: 20090426, end: 20090426
  3. DIAMICRON [Concomitant]
  4. LEXOMIL [Concomitant]
  5. DILTIAZEM HCL [Concomitant]
  6. DEROXAT [Concomitant]
  7. PREGABALIN [Concomitant]
  8. LIPANTHYL [Concomitant]
  9. LANTUS [Concomitant]
  10. INIPOMP [Concomitant]
  11. SPECIAFOLDINE [Concomitant]
  12. DAFALGAN [Concomitant]
  13. VOGALENE [Concomitant]
  14. SPASFON [Concomitant]
  15. ATARAX [Concomitant]

REACTIONS (6)
  - EOSINOPHILIA [None]
  - ERYTHEMA [None]
  - OEDEMA PERIPHERAL [None]
  - RASH MACULAR [None]
  - SEBORRHOEIC KERATOSIS [None]
  - SKIN EXFOLIATION [None]
